FAERS Safety Report 13044564 (Version 1)
Quarter: 2016Q4

REPORT INFORMATION
  Report Type: Spontaneous
  Country: US (occurrence: US)
  Receive Date: 20161220
  Receipt Date: 20161220
  Transmission Date: 20170207
  Serious: Yes (Other)
  Sender: FDA-Public Use
  Company Number: US-ROCHE-1048053

PATIENT
  Age: 83 Year
  Sex: Male
  Weight: 72.64 kg

DRUGS (7)
  1. CIPRO [Concomitant]
     Active Substance: CIPROFLOXACIN HYDROCHLORIDE
     Route: 048
  2. NIFEREX-150 FORTE CAPSULES [Concomitant]
     Dosage: 150-25-1 CAPSULE
     Route: 048
  3. VITAMIN C [Concomitant]
     Active Substance: ASCORBIC ACID
     Route: 048
  4. ZELBORAF [Suspect]
     Active Substance: VEMURAFENIB
     Indication: MALIGNANT MELANOMA
     Route: 048
     Dates: start: 20120123
  5. VITAMIN E [Concomitant]
     Active Substance: .ALPHA.-TOCOPHEROL
     Route: 048
  6. XANAX [Concomitant]
     Active Substance: ALPRAZOLAM
     Indication: ANXIETY
     Route: 048
  7. BABY ASPIRIN [Concomitant]
     Active Substance: ASPIRIN
     Route: 048

REACTIONS (14)
  - Ageusia [Unknown]
  - Alopecia [Unknown]
  - Arthralgia [Unknown]
  - Chromaturia [Unknown]
  - Squamous cell carcinoma [Unknown]
  - Rash [Unknown]
  - Melanocytic naevus [Unknown]
  - Pollakiuria [Unknown]
  - Abdominal pain upper [Unknown]
  - Constipation [Unknown]
  - Chest pain [Unknown]
  - Fatigue [Unknown]
  - Hypoaesthesia [Unknown]
  - Chills [Unknown]

NARRATIVE: CASE EVENT DATE: 20120207
